FAERS Safety Report 25598937 (Version 1)
Quarter: 2025Q3

REPORT INFORMATION
  Report Type: Spontaneous
  Country: US (occurrence: US)
  Receive Date: 20250724
  Receipt Date: 20250724
  Transmission Date: 20251020
  Serious: No
  Sender: ROCHE
  Company Number: US-ROCHE-10000338606

PATIENT
  Age: 77 Year
  Sex: Male

DRUGS (10)
  1. MABTHERA [Suspect]
     Active Substance: RITUXIMAB
     Indication: Papilloedema
     Route: 065
  2. MABTHERA [Suspect]
     Active Substance: RITUXIMAB
     Indication: Bing-Neel syndrome
  3. NALTREXONE [Concomitant]
     Active Substance: NALTREXONE
  4. IBRUTINIB [Concomitant]
     Active Substance: IBRUTINIB
  5. APIXABAN [Concomitant]
     Active Substance: APIXABAN
  6. FAMOTIDINE [Concomitant]
     Active Substance: FAMOTIDINE
  7. FERROUS SULFATE [Concomitant]
     Active Substance: FERROUS SULFATE
  8. LISINOPRIL [Concomitant]
     Active Substance: LISINOPRIL
  9. ZANUBRUTINIB [Concomitant]
     Active Substance: ZANUBRUTINIB
  10. PREDNISONE [Concomitant]
     Active Substance: PREDNISONE

REACTIONS (1)
  - Drug intolerance [Unknown]
